FAERS Safety Report 19581289 (Version 1)
Quarter: 2021Q3

REPORT INFORMATION
  Report Type: Report from Study
  Country: CN (occurrence: CN)
  Receive Date: 20210719
  Receipt Date: 20210719
  Transmission Date: 20211014
  Serious: Yes (Hospitalization)
  Sender: FDA-Public Use
  Company Number: CN-ORGANON-O2107CHN000915

PATIENT
  Age: 57 Year
  Sex: Male
  Weight: 71 kg

DRUGS (6)
  1. LOSARTAN POTASSIUM. [Suspect]
     Active Substance: LOSARTAN POTASSIUM
     Indication: ESSENTIAL HYPERTENSION
     Dosage: 50 MILLIGRAM, QD (ANALOGUE TABLET)
     Route: 048
     Dates: start: 20200820, end: 20200830
  2. EPLERENONE. [Suspect]
     Active Substance: EPLERENONE
     Indication: ESSENTIAL HYPERTENSION
     Dosage: 50 MILLIGRAM, QD (ANALOGUE TABLET)
     Route: 048
     Dates: start: 20200820, end: 20200830
  3. LEVAMLODIPINE [Concomitant]
     Active Substance: LEVAMLODIPINE
     Indication: HYPERTENSION
     Dosage: 2.5 MILLIGRAM, QD
     Route: 048
     Dates: start: 20200925
  4. LOSARTAN POTASSIUM. [Suspect]
     Active Substance: LOSARTAN POTASSIUM
     Dosage: 50 MILLIGRAM, QD (ANALOGUE TABLET)
     Route: 048
     Dates: start: 20200831, end: 20200924
  5. SULFOTANSHINONE SODIUM INJECTION [Concomitant]
     Dosage: UNK
  6. EPLERENONE. [Suspect]
     Active Substance: EPLERENONE
     Dosage: 50 MILLIGRAM, QD (ANALOGUE TABLET)
     Route: 048
     Dates: start: 20200831, end: 20200924

REACTIONS (1)
  - Vertebrobasilar insufficiency [Recovered/Resolved]

NARRATIVE: CASE EVENT DATE: 20200926
